FAERS Safety Report 10248318 (Version 3)
Quarter: 2014Q2

REPORT INFORMATION
  Report Type: Spontaneous
  Country: US (occurrence: US)
  Receive Date: 20140620
  Receipt Date: 20140623
  Transmission Date: 20141212
  Serious: Yes (Hospitalization, Other)
  Sender: FDA-Public Use
  Company Number: US-DRREDDYS-USA/USA/14/0041178

PATIENT
  Age: 57 Year
  Sex: Female
  Weight: 50.8 kg

DRUGS (1)
  1. ZENATANE [Suspect]
     Indication: ACNE
     Route: 048
     Dates: start: 20140530, end: 20140530

REACTIONS (5)
  - Anxiety [Recovered/Resolved]
  - Abnormal behaviour [Recovered/Resolved]
  - Dyspnoea [Recovered/Resolved]
  - Hypertension [Recovered/Resolved]
  - Electrocardiogram abnormal [Recovered/Resolved]
